FAERS Safety Report 4976826-2 (Version None)
Quarter: 2006Q2

REPORT INFORMATION
  Report Type: 
  Country: None (occurrence: None)
  Receive Date: 20060418
  Receipt Date: 20060418
  Transmission Date: 20061013
  Serious: No
  Sender: FDA-Public Use
  Company Number: None

PATIENT
  Age: 27 Year
  Sex: Female
  Weight: 90.7194 kg

DRUGS (2)
  1. LAMICTAL [Suspect]
     Indication: BIPOLAR DISORDER
     Dosage: 200 MG QHS PO
     Route: 048
     Dates: start: 20041101, end: 20060301
  2. BUSPIRONE (LESS LIKELY) [Suspect]
     Indication: GENERALISED ANXIETY DISORDER
     Dosage: 15 MG BID PO
     Route: 048
     Dates: start: 20051201, end: 20060301

REACTIONS (2)
  - DYSTONIA [None]
  - TORTICOLLIS [None]
